FAERS Safety Report 19949631 (Version 1)
Quarter: 2021Q4

REPORT INFORMATION
  Report Type: Spontaneous
  Country: US (occurrence: US)
  Receive Date: 20211012
  Receipt Date: 20211012
  Transmission Date: 20220303
  Serious: Yes (Death)
  Sender: FDA-Public Use
  Company Number: None

PATIENT
  Sex: Male
  Weight: 98.55 kg

DRUGS (14)
  1. ERLEADA [Suspect]
     Active Substance: APALUTAMIDE
     Indication: Prostate cancer
     Route: 048
  2. AMLODIPINE BESYLATE [Concomitant]
     Active Substance: AMLODIPINE BESYLATE
  3. CASODEX [Concomitant]
     Active Substance: BICALUTAMIDE
  4. COLACE [Concomitant]
     Active Substance: DOCUSATE SODIUM
  5. FOLIC ACID [Concomitant]
     Active Substance: FOLIC ACID
  6. METAMUCIL FREE + NATURAL [Concomitant]
  7. METOPROLOL-HCTZ ER [Concomitant]
  8. MULTIVITAMIN ADULT [Concomitant]
  9. CLOPIDOGREL BISULFATE [Concomitant]
     Active Substance: CLOPIDOGREL BISULFATE
  10. CALCIUM\VITAMIN D [Concomitant]
     Active Substance: CALCIUM\VITAMIN D
  11. LUPRON DEPOT [Concomitant]
     Active Substance: LEUPROLIDE ACETATE
  12. XARELTO [Concomitant]
     Active Substance: RIVAROXABAN
  13. CIPROFLOXACIN HYDROCHLORIDE [Concomitant]
     Active Substance: CIPROFLOXACIN HYDROCHLORIDE
  14. METRONIDAZOLE [Concomitant]
     Active Substance: METRONIDAZOLE

REACTIONS (1)
  - Death [None]
